FAERS Safety Report 11080813 (Version 2)
Quarter: 2018Q2

REPORT INFORMATION
  Report Type: Spontaneous
  Country: IT (occurrence: IT)
  Receive Date: 20150501
  Receipt Date: 20180531
  Transmission Date: 20180711
  Serious: Yes (Other)
  Sender: FDA-Public Use
  Company Number: IT-ACCORD-030438

PATIENT
  Age: 42 Year

DRUGS (12)
  1. TACROLIMUS. [Suspect]
     Active Substance: TACROLIMUS
     Indication: LIVER TRANSPLANT
  2. TENOFOVIR/TENOFOVIR DISOPROXIL FUMARATE [Interacting]
     Active Substance: TENOFOVIR DISOPROXIL FUMARATE
     Indication: ANTIRETROVIRAL THERAPY
  3. CICLOSPORIN [Suspect]
     Active Substance: CYCLOSPORINE
     Indication: IMMUNOSUPPRESSANT DRUG THERAPY
  4. IMMUNOGLOBULIN ANTIHEPATITIS B [Concomitant]
     Indication: HEPATITIS B
     Dosage: 2160 IU MONTHLY
     Route: 030
  5. LAMIVUDINE. [Concomitant]
     Active Substance: LAMIVUDINE
     Indication: ANTIRETROVIRAL THERAPY
     Dosage: 300MG SINGLE DOSE
  6. EMTRICITABINE [Interacting]
     Active Substance: EMTRICITABINE
     Indication: ANTIRETROVIRAL THERAPY
     Dates: start: 2008
  7. FOSAMPRENAVIR/FOSAMPRENAVIR CALCIUM [Interacting]
     Active Substance: FOSAMPRENAVIR CALCIUM
     Indication: ANTIRETROVIRAL THERAPY
  8. LOPINAVIR/RITONAVIR [Concomitant]
     Indication: ANTIRETROVIRAL THERAPY
     Dosage: 800MG AND 200MG RESPECTIVELY
  9. ZIDOVUDINE. [Concomitant]
     Active Substance: ZIDOVUDINE
     Indication: ANTIRETROVIRAL THERAPY
     Dosage: SINGLE DOSE
  10. EVEROLIMUS. [Interacting]
     Active Substance: EVEROLIMUS
     Indication: LIVER TRANSPLANT
  11. RALTEGRAVIR. [Concomitant]
     Active Substance: RALTEGRAVIR
     Indication: ANTIRETROVIRAL THERAPY
  12. IMMUNOGLOBULIN ANTIHEPATITIS B [Concomitant]
     Indication: HEPATITIS B
     Dosage: 2160 IU MONTHLY
     Route: 030

REACTIONS (3)
  - Transaminases increased [Recovering/Resolving]
  - Drug interaction [Unknown]
  - Toxicity to various agents [Recovering/Resolving]

NARRATIVE: CASE EVENT DATE: 200902
